FAERS Safety Report 10378374 (Version 2)
Quarter: 2014Q3

REPORT INFORMATION
  Report Type: Spontaneous
  Country: US (occurrence: US)
  Receive Date: 20140812
  Receipt Date: 20140815
  Transmission Date: 20150326
  Serious: No
  Sender: FDA-Public Use
  Company Number: US-PFIZER INC-2014220051

PATIENT
  Age: 67 Year
  Sex: Female

DRUGS (6)
  1. LEVOTHYROXINE SODIUM. [Concomitant]
     Active Substance: LEVOTHYROXINE SODIUM
     Dosage: UNK
  2. VALSARTAN-HYDROCHLORTHIAZIDE [Concomitant]
     Dosage: UNK
  3. ASPIRIN LOW STRENGTH [Concomitant]
     Dosage: UNK
  4. RANITIDINE HYDROCHLORIDE. [Concomitant]
     Active Substance: RANITIDINE HYDROCHLORIDE
     Dosage: UNK
  5. PREDNISONE. [Concomitant]
     Active Substance: PREDNISONE
     Dosage: UNK
  6. SUTENT [Suspect]
     Active Substance: SUNITINIB MALATE
     Indication: SOFT TISSUE SARCOMA
     Dosage: 37.5 MG (12.5 AND 25 MG)
     Dates: start: 20140718

REACTIONS (8)
  - Pruritus [Unknown]
  - Fatigue [Unknown]
  - Skin exfoliation [Unknown]
  - Eye swelling [Unknown]
  - Dysgeusia [Unknown]
  - Off label use [Unknown]
  - Constipation [Unknown]
  - Anal haemorrhage [Unknown]

NARRATIVE: CASE EVENT DATE: 2014
